FAERS Safety Report 19578271 (Version 1)
Quarter: 2021Q3

REPORT INFORMATION
  Report Type: Spontaneous
  Country: US (occurrence: US)
  Receive Date: 20210720
  Receipt Date: 20210720
  Transmission Date: 20211014
  Serious: No
  Sender: FDA-Public Use
  Company Number: US-INVENTIA-000112

PATIENT
  Sex: Female

DRUGS (1)
  1. VENLAFAXINE [Suspect]
     Active Substance: VENLAFAXINE HYDROCHLORIDE
     Indication: PRODUCT USED FOR UNKNOWN INDICATION
     Dosage: EXTENDED RELEASE CAPSULES

REACTIONS (6)
  - Dizziness [Unknown]
  - Diarrhoea [Unknown]
  - Malaise [Unknown]
  - Crying [Unknown]
  - Wheezing [Unknown]
  - Headache [Unknown]
